FAERS Safety Report 14327611 (Version 2)
Quarter: 2018Q1

REPORT INFORMATION
  Report Type: Report from Study
  Country: IT (occurrence: IT)
  Receive Date: 20171227
  Receipt Date: 20180124
  Transmission Date: 20180509
  Serious: Yes (Other)
  Sender: FDA-Public Use
  Company Number: IT-AMGEN-ITACT2017189674

PATIENT
  Age: 72 Year
  Sex: Male
  Weight: 61 kg

DRUGS (15)
  1. BASSADO [Concomitant]
     Active Substance: DOXYCYCLINE HYCLATE
     Indication: RASH
     Dosage: 100 MG, QD
     Dates: start: 20171214
  2. PANITUMUMAB [Suspect]
     Active Substance: PANITUMUMAB
     Indication: COLORECTAL CANCER METASTATIC
     Dosage: 365 MG, UNK
     Route: 065
     Dates: start: 20170906
  3. MEDROL [Concomitant]
     Active Substance: METHYLPREDNISOLONE
     Indication: RHEUMATOID ARTHRITIS
     Dosage: 4 MG, QD
  4. CLEXANE [Concomitant]
     Active Substance: ENOXAPARIN SODIUM
     Indication: THROMBOCYTOPENIA
     Dosage: 4000 (1 FL), UNK
     Dates: start: 20171214
  5. LASIX [Concomitant]
     Active Substance: FUROSEMIDE
     Indication: RENAL FAILURE
     Dosage: 1 FL, TID
     Dates: start: 20171214
  6. PANITUMUMAB [Suspect]
     Active Substance: PANITUMUMAB
     Dosage: 414 MG, UNK
     Route: 065
     Dates: start: 20171130
  7. FOLINIC ACID [Suspect]
     Active Substance: LEUCOVORIN
     Indication: COLORECTAL CANCER METASTATIC
     Dosage: 345 MG, UNK
     Route: 065
     Dates: start: 20170906
  8. PRITOR PLUS [Concomitant]
     Active Substance: TELMISARTAN
     Indication: HYPERTENSION
     Dosage: 80/12.5MG, QD
     Dates: start: 20171214
  9. FOLINIC ACID [Suspect]
     Active Substance: LEUCOVORIN
     Dosage: 345 MG, UNK
     Route: 065
     Dates: start: 20171130
  10. ALBUMIN [Concomitant]
     Active Substance: ALBUMIN HUMAN
     Indication: MALABSORPTION
     Dosage: 1 FL, BID
  11. OLIMEL [Concomitant]
     Active Substance: AMINO ACIDS\DEXTROSE\SOYBEAN OIL
     Indication: PARENTERAL NUTRITION
     Dosage: 1500 UNK, UNK
     Dates: start: 20171214
  12. CALCIUM GLUCONATE. [Concomitant]
     Active Substance: CALCIUM GLUCONATE
     Indication: HYPOCALCAEMIA
     Dosage: 2 FL/250CC, BID
  13. 5-FLUOROURACIL [Suspect]
     Active Substance: FLUOROURACIL
     Indication: COLORECTAL CANCER METASTATIC
     Dosage: 4150 MG, UNK
     Route: 065
     Dates: start: 20170906
  14. 5-FLUOROURACIL [Suspect]
     Active Substance: FLUOROURACIL
     Dosage: 4150 MG, UNK
     Route: 065
     Dates: start: 20171130
  15. CONGESCOR [Concomitant]
     Active Substance: BISOPROLOL
     Indication: HYPERTENSION
     Dosage: 1.25 MG, UNK

REACTIONS (2)
  - Colitis [Recovered/Resolved]
  - Atrial fibrillation [Not Recovered/Not Resolved]

NARRATIVE: CASE EVENT DATE: 20171214
